FAERS Safety Report 10703025 (Version 2)
Quarter: 2015Q1

REPORT INFORMATION
  Report Type: Spontaneous
  Country: FR (occurrence: FR)
  Receive Date: 20150111
  Receipt Date: 20150111
  Transmission Date: 20150721
  Serious: Yes (Hospitalization, Other)
  Sender: FDA-Public Use
  Company Number: FR-TEVA-527671ISR

PATIENT
  Age: 46 Year
  Sex: Male

DRUGS (3)
  1. ACTIQ [Suspect]
     Active Substance: FENTANYL CITRATE
     Indication: PAIN IN EXTREMITY
     Dosage: 2400 MICROGRAM DAILY; LONG-STANDING TREATMENT
     Route: 002
     Dates: start: 2008
  2. SERESTA [Suspect]
     Active Substance: OXAZEPAM
     Route: 065
  3. TERCIAN [Concomitant]
     Active Substance: CYAMEMAZINE
     Route: 065

REACTIONS (3)
  - Hospitalisation [Unknown]
  - Dependence [Not Recovered/Not Resolved]
  - Product use issue [Not Recovered/Not Resolved]

NARRATIVE: CASE EVENT DATE: 201412
